FAERS Safety Report 18677113 (Version 1)
Quarter: 2020Q4

REPORT INFORMATION
  Report Type: Spontaneous
  Country: DE (occurrence: DE)
  Receive Date: 20201229
  Receipt Date: 20201229
  Transmission Date: 20210114
  Serious: Yes (Other)
  Sender: FDA-Public Use
  Company Number: DE-ALLERGAN-2049962US

PATIENT
  Sex: Female

DRUGS (5)
  1. DORZOLAMIDE [Concomitant]
     Active Substance: DORZOLAMIDE
  2. PILOCARPINE. [Concomitant]
     Active Substance: PILOCARPINE
  3. BIMATOPROST W/TIMOLOL MALEATE [Concomitant]
     Active Substance: BIMATOPROST\TIMOLOL MALEATE
  4. ACETAZOLAMIDE. [Concomitant]
     Active Substance: ACETAZOLAMIDE
  5. ALPHAGAN P [Suspect]
     Active Substance: BRIMONIDINE TARTRATE
     Indication: OPEN ANGLE GLAUCOMA

REACTIONS (1)
  - Iridocyclitis [Recovered/Resolved]
